FAERS Safety Report 14292725 (Version 2)
Quarter: 2017Q4

REPORT INFORMATION
  Report Type: Spontaneous
  Country: GB (occurrence: GB)
  Receive Date: 20171215
  Receipt Date: 20171215
  Transmission Date: 20180321
  Serious: Yes (Hospitalization)
  Sender: FDA-Public Use
  Company Number: GB-SA-2017SA208246

PATIENT
  Age: 20 Month
  Sex: Male

DRUGS (2)
  1. MYOZYME [Suspect]
     Active Substance: ALGLUCOSIDASE ALFA
     Route: 041
     Dates: start: 2017
  2. MYOZYME [Suspect]
     Active Substance: ALGLUCOSIDASE ALFA
     Route: 041
     Dates: end: 20171009

REACTIONS (10)
  - Lower respiratory tract infection [Unknown]
  - Pyrexia [Unknown]
  - Wheezing [Recovered/Resolved]
  - Oxygen saturation decreased [Unknown]
  - Cough [Unknown]
  - Device issue [Unknown]
  - Respiratory rate increased [Recovered/Resolved]
  - Nasopharyngitis [Unknown]
  - Asthma [Unknown]
  - Malaise [Unknown]

NARRATIVE: CASE EVENT DATE: 201710
